FAERS Safety Report 8845283 (Version 2)
Quarter: 2013Q1

REPORT INFORMATION
  Report Type: Spontaneous
  Country: US (occurrence: None)
  Receive Date: 20121005
  Receipt Date: 20130128
  Transmission Date: 20140127
  Serious: Yes (Hospitalization)
  Sender: FDA-Public Use
  Company Number: 2012PROUSA02029

PATIENT
  Age: 65 Year
  Sex: Male
  Weight: 100 kg

DRUGS (9)
  1. PROVENGE (SIPULEUCEL-T) SUSPENSION [Suspect]
     Indication: PROSTATE CANCER METASTATIC
     Dosage: 250 ML, SINGLE, INTRAVENOUS
     Route: 042
     Dates: start: 20120914, end: 20120914
  2. CLONIDINE [Concomitant]
  3. CASODEX (BICALUTAMIDE) [Concomitant]
  4. TRICO (FENOFIBRATE) [Concomitant]
  5. LUPRON (LEUPRORELIN ACETATE) [Concomitant]
  6. LIPITOR (ATROVASTATIN CALCIUM) [Concomitant]
  7. METOPROLOL (METOPROLOL TARTRATE) [Concomitant]
  8. XGEVA (DENOSUMAB) [Concomitant]
  9. IBUPROPFEN (IBUPROFEN) [Concomitant]

REACTIONS (6)
  - Atrial fibrillation [None]
  - Dizziness [None]
  - Heart rate increased [None]
  - Sensory disturbance [None]
  - Nausea [None]
  - Hyperhidrosis [None]
